FAERS Safety Report 16726333 (Version 1)
Quarter: 2019Q3

REPORT INFORMATION
  Report Type: Spontaneous
  Country: US (occurrence: US)
  Receive Date: 20190821
  Receipt Date: 20190821
  Transmission Date: 20191005
  Serious: Yes (Other)
  Sender: FDA-Public Use
  Company Number: US-TEVA-2019-US-1093849

PATIENT
  Age: 26 Year
  Sex: Male

DRUGS (9)
  1. LEVOTHYROXINE. [Concomitant]
     Active Substance: LEVOTHYROXINE
     Dosage: 75 MCG DAILY
  2. RESTALINE [Suspect]
     Active Substance: SERTRALINE HYDROCHLORIDE
     Route: 065
  3. HALOPERIDOL DECANOATE. [Suspect]
     Active Substance: HALOPERIDOL DECANOATE
     Indication: SCHIZOAFFECTIVE DISORDER
     Dosage: 5 MG TABLET
     Route: 048
  4. LATUDA [Concomitant]
     Active Substance: LURASIDONE HYDROCHLORIDE
     Dosage: 20 MILLIGRAM DAILY; 20 MG DAILY
  5. BUSPIRONE [Concomitant]
     Active Substance: BUSPIRONE HYDROCHLORIDE
     Dosage: 10 MG TWICE A DAY
  6. HALOPERIDOL DECANOATE. [Suspect]
     Active Substance: HALOPERIDOL DECANOATE
     Dosage: 50 MG/ML; 300 MG EVERY 21 DAYS
     Route: 065
  7. LITHIUM. [Concomitant]
     Active Substance: LITHIUM
     Dosage: 900 MILLIGRAM DAILY;
  8. PROPRANOLOL [Concomitant]
     Active Substance: PROPRANOLOL HYDROCHLORIDE
     Dosage: 40 MILLIGRAM DAILY; 20 MG TWICE A DAY
  9. BENZTROPINE. [Concomitant]
     Active Substance: BENZTROPINE
     Dosage: 4 MILLIGRAM DAILY; 2 MG TWICE A DAY

REACTIONS (9)
  - Thyroid disorder [Unknown]
  - Tic [Unknown]
  - Gait disturbance [Unknown]
  - Gynaecomastia [Unknown]
  - Therapeutic product effect incomplete [Unknown]
  - Psychomotor hyperactivity [Unknown]
  - Blister [Unknown]
  - Bruxism [Unknown]
  - Malaise [Unknown]

NARRATIVE: CASE EVENT DATE: 2018
